FAERS Safety Report 10715455 (Version 2)
Quarter: 2015Q1

REPORT INFORMATION
  Report Type: Report from Study
  Country: BR (occurrence: BR)
  Receive Date: 20150116
  Receipt Date: 20150320
  Transmission Date: 20150721
  Serious: Yes (Hospitalization, Other)
  Sender: FDA-Public Use
  Company Number: BR-ROCHE-1521485

PATIENT
  Age: 77 Year
  Sex: Female
  Weight: 72 kg

DRUGS (6)
  1. ACTEMRA [Suspect]
     Active Substance: TOCILIZUMAB
     Indication: RHEUMATOID ARTHRITIS
     Route: 042
     Dates: start: 20101001, end: 201408
  2. DIPYRONE [Concomitant]
     Active Substance: DIPYRONE
  3. ARAVA [Concomitant]
     Active Substance: LEFLUNOMIDE
  4. SIMVASTATIN. [Concomitant]
     Active Substance: SIMVASTATIN
  5. CONCOR [Concomitant]
     Active Substance: BISOPROLOL FUMARATE
  6. ADALAT [Concomitant]
     Active Substance: NIFEDIPINE

REACTIONS (10)
  - Hypertension [Not Recovered/Not Resolved]
  - Intestinal perforation [Unknown]
  - Immunodeficiency [Not Recovered/Not Resolved]
  - Gallbladder perforation [Unknown]
  - Cholelithiasis [Unknown]
  - Clostridial infection [Unknown]
  - Diarrhoea [Recovering/Resolving]
  - Bacterial infection [Not Recovered/Not Resolved]
  - Diabetes mellitus [Not Recovered/Not Resolved]
  - Anaemia [Not Recovered/Not Resolved]

NARRATIVE: CASE EVENT DATE: 20141020
